FAERS Safety Report 8314904-0 (Version None)
Quarter: 2012Q2

REPORT INFORMATION
  Report Type: 
  Country: None (occurrence: None)
  Receive Date: 20120426
  Receipt Date: 20120418
  Transmission Date: 20120825
  Serious: Yes (Other)
  Sender: FDA-Public Use
  Company Number: US-JNJFOC-20120408655

PATIENT
  Sex: Male

DRUGS (2)
  1. UNSPECIFIED BLOOD PRESSURE MEDS [Concomitant]
  2. XARELTO [Suspect]
     Indication: SURGERY
     Route: 048
     Dates: start: 20120401

REACTIONS (3)
  - BLOOD BLISTER [None]
  - DIZZINESS [None]
  - RASH [None]
